FAERS Safety Report 5193558-9 (Version None)
Quarter: 2006Q4

REPORT INFORMATION
  Report Type: 
  Country: None (occurrence: None)
  Receive Date: 20061221
  Receipt Date: 20061218
  Transmission Date: 20070319
  Serious: Yes (Hospitalization)
  Sender: FDA-Public Use
  Company Number: 028-C5013-06120306

PATIENT
  Age: 61 Year
  Sex: Male
  Weight: 96 kg

DRUGS (2)
  1. CC-5013 (LENALIDOMIDE ) (CAPSULES) [Suspect]
     Indication: MULTIPLE MYELOMA
     Dosage: 25 MG, QD X 21 DAYS, ORAL
     Route: 048
     Dates: start: 20060425, end: 20061114
  2. DEXAMETHASONE TAB [Suspect]
     Indication: MULTIPLE MYELOMA
     Dates: start: 20060425, end: 20061114

REACTIONS (3)
  - HAEMOGLOBIN DECREASED [None]
  - RESPIRATORY SYNCYTIAL VIRUS INFECTION [None]
  - THROMBOCYTOPENIA [None]
